FAERS Safety Report 10050332 (Version 1)
Quarter: 2014Q1

REPORT INFORMATION
  Report Type: Spontaneous
  Country: US (occurrence: None)
  Receive Date: 20140331
  Receipt Date: 20140331
  Transmission Date: 20141002
  Serious: Yes (Other)
  Sender: FDA-Public Use
  Company Number: None

PATIENT
  Age: 67 Year
  Sex: Male
  Weight: 113.4 kg

DRUGS (3)
  1. XARELTO 20 MG [Suspect]
     Indication: CARDIAC ABLATION
     Route: 048
     Dates: start: 20140307, end: 20140317
  2. XARELTO 20 MG [Suspect]
     Indication: CARDIOVERSION
     Route: 048
     Dates: start: 20140307, end: 20140317
  3. XARELTO 20 MG [Suspect]
     Indication: ATRIAL FIBRILLATION
     Route: 048
     Dates: start: 20140307, end: 20140317

REACTIONS (1)
  - Blood urine present [None]
